FAERS Safety Report 4805432-5 (Version None)
Quarter: 2005Q4

REPORT INFORMATION
  Report Type: 
  Country: None (occurrence: None)
  Receive Date: 20051018
  Receipt Date: 20051006
  Transmission Date: 20060501
  Serious: Yes (Death, Hospitalization)
  Sender: FDA-Public Use
  Company Number: 2005135547

PATIENT
  Age: 82 Year
  Sex: Male

DRUGS (2)
  1. SULPERAZONE (SULBACTAM, CEFOPERAZONE) [Suspect]
     Indication: PNEUMONIA
     Dosage: 6 GRAM (1.5 GRAM, 1 IN 6 HR), INTRAVENOUS
     Route: 042
     Dates: start: 20050923, end: 20050927
  2. ZYVOX [Concomitant]

REACTIONS (1)
  - DRUG INEFFECTIVE [None]
